FAERS Safety Report 4520862-7 (Version None)
Quarter: 2004Q4

REPORT INFORMATION
  Report Type: 
  Country: None (occurrence: None)
  Receive Date: 20041206
  Receipt Date: 20041206
  Transmission Date: 20050328
  Serious: Yes (Life-Threatening)
  Sender: FDA-Public Use
  Company Number: None

PATIENT
  Age: 24 Year
  Sex: Female
  Weight: 55.7924 kg

DRUGS (2)
  1. EFFEXOR XR [Suspect]
     Indication: DEPRESSION
     Dosage: ONCE DAILY PO
     Route: 048
     Dates: start: 20041116
  2. SERZONE [Concomitant]

REACTIONS (2)
  - FEELING ABNORMAL [None]
  - HYPOGLYCAEMIA [None]
